FAERS Safety Report 11801317 (Version 1)
Quarter: 2015Q4

REPORT INFORMATION
  Report Type: Spontaneous
  Country: US (occurrence: US)
  Receive Date: 20151204
  Receipt Date: 20151204
  Transmission Date: 20160305
  Serious: Yes (Hospitalization, Other)
  Sender: FDA-Public Use
  Company Number: US-TEVA-615315USA

PATIENT
  Age: 70 Year
  Sex: Female

DRUGS (5)
  1. ACETYLSALICYLIC ACID [Suspect]
     Active Substance: ASPIRIN
  2. EPTIFIBATIDE. [Suspect]
     Active Substance: EPTIFIBATIDE
  3. CLOPIDOGREL [Concomitant]
     Active Substance: CLOPIDOGREL BISULFATE
  4. METOPROLOL [Concomitant]
     Active Substance: METOPROLOL
  5. ENOXAPARIN [Suspect]
     Active Substance: ENOXAPARIN
     Route: 065

REACTIONS (2)
  - Cardiac tamponade [Recovered/Resolved]
  - Coronary artery dissection [Recovered/Resolved]
